FAERS Safety Report 17037806 (Version 2)
Quarter: 2019Q4

REPORT INFORMATION
  Report Type: Spontaneous
  Country: US (occurrence: US)
  Receive Date: 20191115
  Receipt Date: 20191218
  Transmission Date: 20200122
  Serious: Yes (Hospitalization, Other)
  Sender: FDA-Public Use
  Company Number: US-MYLANLABS-2019M1108172

PATIENT
  Sex: Female
  Weight: 70 kg

DRUGS (1)
  1. ALPRAZOLAM TABLETS, USP [Suspect]
     Active Substance: ALPRAZOLAM
     Indication: ANXIETY
     Dosage: ONCE OR TWICE A DAY
     Route: 048
     Dates: start: 20180401

REACTIONS (8)
  - Kidney infection [Recovered/Resolved]
  - Lethargy [Unknown]
  - Body temperature increased [Recovered/Resolved]
  - Renal impairment [Recovered/Resolved]
  - White blood cell count increased [Recovered/Resolved]
  - Nausea [Unknown]
  - Hypokinesia [Unknown]
  - Chills [Unknown]

NARRATIVE: CASE EVENT DATE: 20190913
